FAERS Safety Report 7201485-8 (Version None)
Quarter: 2010Q4

REPORT INFORMATION
  Report Type: 
  Country: None (occurrence: None)
  Receive Date: 20101229
  Receipt Date: 20101215
  Transmission Date: 20110411
  Serious: Yes (Death, Other)
  Sender: FDA-Public Use
  Company Number: US-RANBAXY-2010RR-40470

PATIENT
  Age: 49 Year
  Sex: Male

DRUGS (5)
  1. VERAPAMIL [Suspect]
     Indication: HYPERTENSION
  2. GABAPENTIN [Suspect]
     Dosage: 300 MG, UNK
     Dates: start: 20100925, end: 20100930
  3. MIRTAZAPINE [Suspect]
  4. PLIVA [Suspect]
     Indication: ANXIETY
     Dosage: 50 MG, UNK
     Dates: start: 20100925, end: 20101119
  5. BUSPIRONE [Suspect]
     Indication: ANXIETY
     Dosage: 15 MG, UNK
     Route: 048
     Dates: start: 20090101

REACTIONS (9)
  - ABDOMINAL DISCOMFORT [None]
  - ANXIETY [None]
  - CHEST PAIN [None]
  - COMPLETED SUICIDE [None]
  - DEPRESSION [None]
  - DYSPEPSIA [None]
  - FEAR OF WEIGHT GAIN [None]
  - GUN SHOT WOUND [None]
  - HEADACHE [None]
